FAERS Safety Report 15367814 (Version 2)
Quarter: 2018Q3

REPORT INFORMATION
  Report Type: Spontaneous
  Country: US (occurrence: US)
  Receive Date: 20180910
  Receipt Date: 20180911
  Transmission Date: 20181010
  Serious: Yes (Disabling, Other)
  Sender: FDA-Public Use
  Company Number: US-PFIZER INC-2018360285

PATIENT
  Age: 53 Year
  Sex: Male
  Weight: 78.2 kg

DRUGS (2)
  1. ZYVOX [Suspect]
     Active Substance: LINEZOLID
     Dosage: 600 MG, 2X/DAY
     Route: 048
     Dates: start: 20180404, end: 20180801
  2. ZYVOX [Suspect]
     Active Substance: LINEZOLID
     Indication: SKIN BACTERIAL INFECTION
     Dosage: UNK

REACTIONS (8)
  - Product use issue [Unknown]
  - Neuropathy peripheral [Unknown]
  - Spinal compression fracture [Recovered/Resolved with Sequelae]
  - Road traffic accident [Recovered/Resolved with Sequelae]
  - Skin infection [Unknown]
  - Paraesthesia [Unknown]
  - Hypoaesthesia [Not Recovered/Not Resolved]
  - Sensory disturbance [Unknown]

NARRATIVE: CASE EVENT DATE: 20180314
